FAERS Safety Report 4420387-3 (Version None)
Quarter: 2004Q3

REPORT INFORMATION
  Report Type: 
  Country: None (occurrence: None)
  Receive Date: 20040809
  Receipt Date: 20040217
  Transmission Date: 20050211
  Serious: Yes (Hospitalization)
  Sender: FDA-Public Use
  Company Number: US-GLAXOSMITHKLINE-A0498536A

PATIENT
  Age: 24 Year
  Sex: Female

DRUGS (3)
  1. PAXIL CR [Suspect]
     Indication: DEPRESSION
     Dosage: 50MG PER DAY
     Route: 048
     Dates: start: 20031103
  2. BUSPAR [Concomitant]
  3. XANAX [Concomitant]

REACTIONS (2)
  - CONVULSION [None]
  - HYPOTONIA [None]
